FAERS Safety Report 8058156-8 (Version None)
Quarter: 2012Q1

REPORT INFORMATION
  Report Type: 
  Country: None (occurrence: None)
  Receive Date: 20120120
  Receipt Date: 20120116
  Transmission Date: 20120608
  Serious: No
  Sender: FDA-Public Use
  Company Number: US-JNJFOC-20120106107

PATIENT
  Sex: Female
  Weight: 63.5 kg

DRUGS (2)
  1. FENTANYL-100 [Suspect]
     Indication: PAIN
     Dosage: 25 UG/HR + 12.5 UG/HR
     Route: 062
     Dates: start: 20110901
  2. FENTANYL-100 [Suspect]
     Dosage: 25 UG/HR + 12.5 UG/HR
     Route: 062
     Dates: start: 20110901

REACTIONS (2)
  - PRODUCT QUALITY ISSUE [None]
  - WRONG TECHNIQUE IN DRUG USAGE PROCESS [None]
